FAERS Safety Report 5024345-X (Version None)
Quarter: 2006Q2

REPORT INFORMATION
  Report Type: 
  Country: None (occurrence: None)
  Receive Date: 20060426
  Receipt Date: 20060308
  Transmission Date: 20061013
  Serious: Yes (Other)
  Sender: FDA-Public Use
  Company Number: 2006034368

PATIENT
  Age: 69 Year
  Sex: Male
  Weight: 77.1115 kg

DRUGS (5)
  1. LYRICA [Suspect]
     Indication: HERPES ZOSTER
     Dosage: 200 MG (100 MG,2 IN 1 D)
  2. ALL OTHER THERAPEUTIC PRODUCTS (ALL OTHER THERAPEUTIC PRODUCTS) [Concomitant]
  3. PREDNISONE TAB [Concomitant]
  4. VICODIN [Concomitant]
  5. LOTREL [Concomitant]

REACTIONS (2)
  - PARAESTHESIA [None]
  - SENSATION OF HEAVINESS [None]
